FAERS Safety Report 8683834 (Version 3)
Quarter: 2013Q4

REPORT INFORMATION
  Report Type: Spontaneous
  Country: FR (occurrence: FR)
  Receive Date: 20120726
  Receipt Date: 20131218
  Transmission Date: 20140711
  Serious: Yes (Hospitalization)
  Sender: FDA-Public Use
  Company Number: FR-JNJFOC-20120708940

PATIENT
  Age: 31 Year
  Sex: Female

DRUGS (7)
  1. PREZISTA [Suspect]
     Indication: HIV INFECTION
     Route: 065
     Dates: start: 20131122
  2. PREZISTA [Suspect]
     Indication: HIV INFECTION
     Route: 065
     Dates: start: 20120426, end: 20130906
  3. TRUVADA [Suspect]
     Indication: PRODUCT USED FOR UNKNOWN INDICATION
     Route: 065
     Dates: start: 20131122
  4. TRUVADA [Suspect]
     Indication: PRODUCT USED FOR UNKNOWN INDICATION
     Route: 065
     Dates: start: 20111222, end: 20130906
  5. NORVIR [Suspect]
     Indication: PRODUCT USED FOR UNKNOWN INDICATION
     Route: 065
     Dates: start: 20120426
  6. NORVIR [Suspect]
     Indication: PRODUCT USED FOR UNKNOWN INDICATION
     Route: 065
     Dates: start: 20131122
  7. ISENTRESS [Concomitant]
     Route: 065
     Dates: end: 201205

REACTIONS (3)
  - Epilepsy [Not Recovered/Not Resolved]
  - Partial seizures [Not Recovered/Not Resolved]
  - Hypoglycaemia [Unknown]
